FAERS Safety Report 10136569 (Version 1)
Quarter: 2014Q2

REPORT INFORMATION
  Report Type: Spontaneous
  Country: US (occurrence: None)
  Receive Date: 20140425
  Receipt Date: 20140425
  Transmission Date: 20141212
  Serious: No
  Sender: FDA-Public Use
  Company Number: None

PATIENT
  Age: 69 Year
  Sex: Female
  Weight: 55.34 kg

DRUGS (2)
  1. HUMIRA PEN 40 MG/0.8 ML [Suspect]
     Indication: PSORIASIS
     Dosage: SINGLE DOSE PREFILLED PEN, 2 X A MONTH, GIVEN INTO/UNDER THE SKIN
     Dates: start: 20140331, end: 20140422
  2. HUMIRA PEN 40 MG/0.8 ML [Suspect]
     Indication: PSORIATIC ARTHROPATHY
     Dosage: SINGLE DOSE PREFILLED PEN, 2 X A MONTH, GIVEN INTO/UNDER THE SKIN
     Dates: start: 20140331, end: 20140422

REACTIONS (2)
  - Peripheral swelling [None]
  - Pain in extremity [None]
